FAERS Safety Report 24559551 (Version 2)
Quarter: 2024Q4

REPORT INFORMATION
  Report Type: Report from Study
  Country: US (occurrence: US)
  Receive Date: 20241029
  Receipt Date: 20241031
  Transmission Date: 20250115
  Serious: Yes (Other)
  Sender: ABBVIE
  Company Number: US-ABBVIE-5979023

PATIENT
  Age: 38 Year
  Sex: Female

DRUGS (2)
  1. SKYRIZI [Suspect]
     Active Substance: RISANKIZUMAB-RZAA
     Indication: Psoriasis
     Dosage: LAST ADMINISTRATION DATE 2024
     Route: 058
     Dates: start: 20240614
  2. SKYRIZI [Suspect]
     Active Substance: RISANKIZUMAB-RZAA
     Dosage: FIRST ADMINISTRATION DATE 2024
     Route: 058

REACTIONS (1)
  - Umbilicoplasty [Unknown]

NARRATIVE: CASE EVENT DATE: 20241003
